FAERS Safety Report 7392269-9 (Version None)
Quarter: 2011Q2

REPORT INFORMATION
  Report Type: 
  Country: None (occurrence: None)
  Receive Date: 20110404
  Receipt Date: 20110324
  Transmission Date: 20111010
  Serious: Yes (Death)
  Sender: FDA-Public Use
  Company Number: RO-ELI_LILLY_AND_COMPANY-RO201103007590

PATIENT
  Sex: Female
  Weight: 60 kg

DRUGS (5)
  1. GLUCOZA [Concomitant]
     Dosage: 200 MILLION IU, UNK
     Dates: start: 20110124
  2. MOBILIN [Concomitant]
     Indication: ASTHMA
     Dosage: 100 MG, BID
     Dates: start: 20110124, end: 20110128
  3. ZYPREXA [Suspect]
     Indication: SCHIZOPHRENIA
     Dosage: 10 MG, QD
     Route: 030
     Dates: start: 20110125, end: 20110127
  4. AMPICILINA [Concomitant]
     Indication: BRONCHITIS
     Dosage: UNK UNK, EVERY 8 HRS
     Dates: start: 20110121
  5. MUCOSIN                            /00546002/ [Concomitant]
     Indication: COUGH
     Dosage: 3 UNK, UNK
     Dates: start: 20110121, end: 20110128

REACTIONS (2)
  - RESPIRATORY ARREST [None]
  - PULMONARY EMBOLISM [None]
